FAERS Safety Report 17457021 (Version 1)
Quarter: 2020Q1

REPORT INFORMATION
  Report Type: Spontaneous
  Country: US (occurrence: US)
  Receive Date: 20200225
  Receipt Date: 20200225
  Transmission Date: 20200409
  Serious: No
  Sender: FDA-Public Use
  Company Number: US-SA-2020SA047984

PATIENT
  Age: 63 Year
  Sex: Female

DRUGS (8)
  1. EXELDERM [Concomitant]
     Active Substance: SULCONAZOLE NITRATE
  2. ORPHENADRINE [ORPHENADRINE HYDROCHLORIDE] [Concomitant]
  3. DUPIXENT [Suspect]
     Active Substance: DUPILUMAB
     Dosage: 300 MG, QOW
     Route: 058
     Dates: start: 20191123
  4. TRIAMCINOLONE [Concomitant]
     Active Substance: TRIAMCINOLONE
  5. ATORVASTATIN [Concomitant]
     Active Substance: ATORVASTATIN
  6. FLUOCINONIDE. [Concomitant]
     Active Substance: FLUOCINONIDE
  7. NAPROXEN. [Concomitant]
     Active Substance: NAPROXEN
     Dosage: UNK MG
  8. PREDNISOLONE. [Concomitant]
     Active Substance: PREDNISOLONE

REACTIONS (2)
  - Unevaluable event [Not Recovered/Not Resolved]
  - Pruritus [Not Recovered/Not Resolved]

NARRATIVE: CASE EVENT DATE: 20200219
